FAERS Safety Report 4298919-8 (Version None)
Quarter: 2004Q1

REPORT INFORMATION
  Report Type: 
  Country: None (occurrence: None)
  Receive Date: 20040217
  Receipt Date: 20040130
  Transmission Date: 20041129
  Serious: Yes (Death, Life-Threatening, Hospitalization, Other)
  Sender: FDA-Public Use
  Company Number: WAES 0402USA00116

PATIENT
  Age: 66 Year
  Sex: Female

DRUGS (6)
  1. ZOCOR [Suspect]
     Indication: HYPERLIPIDAEMIA
     Dosage: 5 MG/DAILY PO
     Route: 048
     Dates: start: 19920324, end: 20010416
  2. ZOCOR [Suspect]
     Indication: HYPERLIPIDAEMIA
     Dosage: 5 MG/DAILY PO
     Route: 048
     Dates: start: 19980101
  3. BISOPROLOL FUMARATE [Concomitant]
  4. DILTIAZEM HYDROCHLORIDE [Concomitant]
  5. GLYBURIDE [Concomitant]
  6. SPIRONOLACTONE [Concomitant]

REACTIONS (3)
  - ANGINA UNSTABLE [None]
  - ARRHYTHMIA [None]
  - CORONARY ARTERY DISEASE [None]
